FAERS Safety Report 15722847 (Version 1)
Quarter: 2018Q4

REPORT INFORMATION
  Report Type: Spontaneous
  Country: US (occurrence: US)
  Receive Date: 20181214
  Receipt Date: 20181214
  Transmission Date: 20190205
  Serious: No
  Sender: FDA-Public Use
  Company Number: US-TEVA-2018-US-983571

PATIENT
  Sex: Female

DRUGS (2)
  1. CLONAZEPAM ACTAVIS [Suspect]
     Active Substance: CLONAZEPAM
     Route: 065
  2. CLONAZEPAM ACCORD [Suspect]
     Active Substance: CLONAZEPAM
     Route: 065

REACTIONS (3)
  - Drug ineffective [Unknown]
  - Nightmare [Unknown]
  - Product substitution issue [Unknown]
